FAERS Safety Report 7269299-0 (Version None)
Quarter: 2011Q1

REPORT INFORMATION
  Report Type: 
  Country: None (occurrence: None)
  Receive Date: 20110124
  Receipt Date: 20110117
  Transmission Date: 20110831
  Serious: Yes (Other)
  Sender: FDA-Public Use
  Company Number: ES-1184718

PATIENT
  Age: 75 Year
  Sex: Male

DRUGS (1)
  1. TOBRADEX [Suspect]
     Dosage: 1 GTT TID OPHTHALMIC
     Route: 047
     Dates: start: 20101119, end: 20101119

REACTIONS (1)
  - KERATITIS [None]
